FAERS Safety Report 11559130 (Version 1)
Quarter: 2015Q3

REPORT INFORMATION
  Report Type: Spontaneous
  Country: US (occurrence: None)
  Receive Date: 20150925
  Receipt Date: 20150925
  Transmission Date: 20151125
  Serious: Yes (Life-Threatening, Hospitalization, Disabling)
  Sender: FDA-Public Use
  Company Number: None

PATIENT
  Age: 75 Year
  Sex: Male
  Weight: 73.94 kg

DRUGS (23)
  1. PREDNISONE. [Concomitant]
     Active Substance: PREDNISONE
  2. PROTONIX [Concomitant]
     Active Substance: PANTOPRAZOLE SODIUM
  3. SYNTHROID [Concomitant]
     Active Substance: LEVOTHYROXINE SODIUM
  4. XARELTO [Concomitant]
     Active Substance: RIVAROXABAN
  5. VITAMIN B COMPLEX [Concomitant]
     Active Substance: CYANOCOBALAMIN\DEXPANTHENOL\NIACINAMIDE\PYRIDOXINE HYDROCHLORIDE\RIBOFLAVIN 5^-PHOSPHATE SODIUM\THIAMINE HYDROCHLORIDE\VITAMIN B COMPLEX
  6. BACTRIM [Concomitant]
     Active Substance: SULFAMETHOXAZOLE\TRIMETHOPRIM
  7. HAWTHERN [Concomitant]
  8. MULTIVITAMIN [Concomitant]
     Active Substance: VITAMINS
  9. COQ10 [Concomitant]
     Active Substance: UBIDECARENONE
  10. LIPITOR [Concomitant]
     Active Substance: ATORVASTATIN CALCIUM
  11. OMEGA 3 + 6 [Concomitant]
  12. AMIODARONE [Suspect]
     Active Substance: AMIODARONE
     Indication: ATRIAL FIBRILLATION
     Dosage: 2 PILLS
     Route: 048
     Dates: start: 20120308, end: 20150902
  13. D-RIBOSE [Concomitant]
     Active Substance: DIETARY SUPPLEMENT
  14. LASIX [Concomitant]
     Active Substance: FUROSEMIDE
  15. LUNG SUPPORT [Concomitant]
  16. LCARNITINE [Concomitant]
  17. GARLIC. [Concomitant]
     Active Substance: GARLIC
  18. VIT. D3 [Concomitant]
  19. MAGNESIUM [Concomitant]
     Active Substance: MAGNESIUM
  20. COREG [Concomitant]
     Active Substance: CARVEDILOL
  21. LISINOPRIL. [Concomitant]
     Active Substance: LISINOPRIL
  22. PROSCAR [Concomitant]
     Active Substance: FINASTERIDE
  23. RAFAFLOW [Concomitant]

REACTIONS (5)
  - Fatigue [None]
  - Pneumonia bacterial [None]
  - Pulmonary fibrosis [None]
  - Asthenia [None]
  - Dyspnoea [None]

NARRATIVE: CASE EVENT DATE: 201506
